FAERS Safety Report 5170189-8 (Version None)
Quarter: 2006Q4

REPORT INFORMATION
  Report Type: 
  Country: None (occurrence: None)
  Receive Date: 20061212
  Receipt Date: 20061207
  Transmission Date: 20070319
  Serious: Yes (Other)
  Sender: FDA-Public Use
  Company Number: CN-JNJFOC-20061202120

PATIENT
  Age: 5 Year
  Sex: Male
  Weight: 23 kg

DRUGS (2)
  1. TYLENOL [Suspect]
  2. TYLENOL [Suspect]
     Indication: PYREXIA

REACTIONS (3)
  - CHILLS [None]
  - CYANOSIS [None]
  - EXPIRED DRUG ADMINISTERED [None]
